FAERS Safety Report 17682705 (Version 1)
Quarter: 2020Q2

REPORT INFORMATION
  Report Type: Report from Study
  Country: None (occurrence: US)
  Receive Date: 20200419
  Receipt Date: 20200419
  Transmission Date: 20200714
  Serious: No
  Sender: FDA-Public Use
  Company Number: US-BIOVITRUM-2019US1360

PATIENT
  Sex: Male

DRUGS (3)
  1. PLAQUENIL [Concomitant]
     Active Substance: HYDROXYCHLOROQUINE SULFATE
  2. METHOTREXATE. [Concomitant]
     Active Substance: METHOTREXATE
  3. KINERET [Suspect]
     Active Substance: ANAKINRA
     Indication: PRODUCT USED FOR UNKNOWN INDICATION
     Route: 058
     Dates: start: 20190429

REACTIONS (6)
  - Rash papular [Unknown]
  - Injection site discolouration [Unknown]
  - Burning sensation [Unknown]
  - Erythema [Unknown]
  - Pruritus [Unknown]
  - Injection site pain [Unknown]
